FAERS Safety Report 6386408-6 (Version None)
Quarter: 2009Q3

REPORT INFORMATION
  Report Type: 
  Country: None (occurrence: None)
  Receive Date: 20090930
  Receipt Date: 20090930
  Transmission Date: 20100115
  Serious: Yes (Other)
  Sender: FDA-Public Use
  Company Number: None

PATIENT
  Age: 3 Year
  Sex: Female
  Weight: 16 kg

DRUGS (2)
  1. ONDANSETRON [Suspect]
     Indication: PREMEDICATION
     Dosage: 8MG/50ML NS DAILY IV DRIP 32MG/50ML NS DAILY IV DRIP
     Route: 041
     Dates: start: 20090924, end: 20090924
  2. ONDANSETRON [Suspect]
     Indication: PREMEDICATION
     Dosage: 8MG/50ML NS DAILY IV DRIP 32MG/50ML NS DAILY IV DRIP
     Route: 041
     Dates: start: 20090929, end: 20090929

REACTIONS (2)
  - CHEST DISCOMFORT [None]
  - DYSPNOEA [None]
